FAERS Safety Report 14278389 (Version 1)
Quarter: 2017Q4

REPORT INFORMATION
  Report Type: Spontaneous
  Country: US (occurrence: US)
  Receive Date: 20171212
  Receipt Date: 20171212
  Transmission Date: 20180321
  Serious: No
  Sender: FDA-Public Use
  Company Number: US-VIFOR (INTERNATIONAL) INC.-VIT-2017-09182

PATIENT
  Age: 82 Year
  Sex: Male

DRUGS (14)
  1. GABAPENTIN. [Concomitant]
     Active Substance: GABAPENTIN
  2. CHROMIUM [Concomitant]
     Active Substance: CHROMIC CHLORIDE\CHROMIUM
  3. FLOMAX [Concomitant]
     Active Substance: TAMSULOSIN HYDROCHLORIDE
  4. ASPIRIN. [Concomitant]
     Active Substance: ASPIRIN
  5. VELTASSA [Suspect]
     Active Substance: PATIROMER
     Indication: HYPERKALAEMIA
     Route: 048
     Dates: start: 20170816
  6. CENTRUM PERFORMANCE [Concomitant]
     Active Substance: MINERALS\VITAMINS
  7. ALLOPURINOL. [Concomitant]
     Active Substance: ALLOPURINOL
  8. COLACE [Concomitant]
     Active Substance: DOCUSATE SODIUM
  9. COQ10 [Concomitant]
     Active Substance: UBIDECARENONE
  10. NORCO [Concomitant]
     Active Substance: ACETAMINOPHEN\HYDROCODONE BITARTRATE
  11. NEXIUM 24HR [Concomitant]
     Active Substance: ESOMEPRAZOLE MAGNESIUM
  12. DIOVAN [Concomitant]
     Active Substance: VALSARTAN
  13. DULCOLAX NOS [Concomitant]
     Active Substance: BISACODYL OR DOCUSATE SODIUM
  14. LASIX [Concomitant]
     Active Substance: FUROSEMIDE

REACTIONS (3)
  - Flatulence [Unknown]
  - Blood potassium increased [Unknown]
  - Diarrhoea [Unknown]

NARRATIVE: CASE EVENT DATE: 20170824
